FAERS Safety Report 8459930-6 (Version None)
Quarter: 2012Q2

REPORT INFORMATION
  Report Type: 
  Country: None (occurrence: None)
  Receive Date: 20120622
  Receipt Date: 20120619
  Transmission Date: 20120825
  Serious: Yes (Other)
  Sender: FDA-Public Use
  Company Number: PHEH2012US011396

PATIENT
  Sex: Female

DRUGS (12)
  1. CELEBREX [Concomitant]
     Dosage: 100 MG, UNK
     Route: 048
  2. ZOMETA [Concomitant]
     Dosage: 4 MG, UNK
  3. LETROZOLE [Concomitant]
     Dosage: 2.5 MG, UNK
     Route: 048
  4. GABAPENTIN [Concomitant]
     Dosage: 300 MG, UNK
     Route: 048
  5. MULTIVITAMIN [Concomitant]
     Dosage: UNK UKN, UNK
     Route: 048
  6. PRILOSEC [Concomitant]
     Dosage: 20 MG, UNK
  7. VITAMIN E [Concomitant]
     Dosage: 400 U, UNK
  8. KLOR-CON [Concomitant]
     Dosage: 10 MEQ, UNK
     Route: 048
  9. CALCIUM D [Concomitant]
     Dosage: UNK UKN, UNK
     Route: 048
  10. DURAGESIC-100 [Concomitant]
     Dosage: 25 UG, UNK
  11. GLEEVEC [Suspect]
     Dosage: 400 MG EVERY DAY
     Route: 048
  12. ONDANSETRON [Concomitant]
     Dosage: 8 MG, UNK
     Route: 048

REACTIONS (5)
  - VOMITING [None]
  - BREAST CANCER [None]
  - NAUSEA [None]
  - DECREASED APPETITE [None]
  - WEIGHT DECREASED [None]
